FAERS Safety Report 13186682 (Version 1)
Quarter: 2017Q1

REPORT INFORMATION
  Report Type: Spontaneous
  Country: US (occurrence: US)
  Receive Date: 20170205
  Receipt Date: 20170205
  Transmission Date: 20170428
  Serious: No
  Sender: FDA-Public Use
  Company Number: US-CELGENEUS-USA-2017018836

PATIENT
  Sex: Female

DRUGS (1)
  1. REVLIMID [Suspect]
     Active Substance: LENALIDOMIDE
     Indication: LEUKAEMIA
     Dosage: 1.25 MILLIGRAM
     Route: 048

REACTIONS (2)
  - Bronchitis [Recovered/Resolved]
  - Nephrolithiasis [Recovered/Resolved]
